FAERS Safety Report 18317594 (Version 1)
Quarter: 2020Q3

REPORT INFORMATION
  Report Type: Spontaneous
  Country: KR (occurrence: KR)
  Receive Date: 20200928
  Receipt Date: 20200928
  Transmission Date: 20201103
  Serious: Yes (Hospitalization, Other)
  Sender: FDA-Public Use
  Company Number: KR-ALVOGEN-2020-ALVOGEN-114704

PATIENT
  Age: 18 Year
  Sex: Male

DRUGS (4)
  1. DOXORUBICIN [Suspect]
     Active Substance: DOXORUBICIN
     Indication: HEPATOCELLULAR CARCINOMA
     Dosage: 30 MG/M2 ON DAYS 1 AND 2?ON 20TH DAY, RECEIVED SECOND COURSE?RECEIVED TWO ADDITIONAL COURSES
  2. INTERFERON ALFA NOS [Suspect]
     Active Substance: INTERFERON ALFA-2A OR INTERFERON ALFA-2B
     Indication: HEPATOCELLULAR CARCINOMA
     Dosage: 5X108 U/M2 ON DAYS 1?4?ON 20TH DAY, UNDERWENT SECOND COURSE?RECEIVED TWO ADDITIONAL COURSES
  3. CISPLATIN. [Suspect]
     Active Substance: CISPLATIN
     Indication: HEPATOCELLULAR CARCINOMA
     Dosage: 80 MG/M2 ON DAY 1?ON 20TH DAY, RECEIVED SECOND COURSE?RECEIVED TWO ADDITIONAL COURSES
  4. FLUOROURACIL. [Suspect]
     Active Substance: FLUOROURACIL
     Indication: HEPATOCELLULAR CARCINOMA
     Dosage: 5?FU; 400 MG/M2 ON DAYS 1?4?ON 20TH DAY, RECEIVED SECOND COURSE?RECEIVED TWO ADDITIONAL COURSES

REACTIONS (1)
  - Hyperammonaemic encephalopathy [Recovered/Resolved]
